FAERS Safety Report 9314408 (Version 2)
Quarter: 2013Q3

REPORT INFORMATION
  Report Type: Report from Study
  Country: BR (occurrence: BR)
  Receive Date: 20130529
  Receipt Date: 20130806
  Transmission Date: 20140515
  Serious: Yes (Life-Threatening, Disabling, Other)
  Sender: FDA-Public Use
  Company Number: BR-ABBOTT-13P-020-1095615-00

PATIENT
  Age: 43 Year
  Sex: Female
  Weight: 63 kg

DRUGS (9)
  1. HUMIRA [Suspect]
     Indication: RHEUMATOID ARTHRITIS
     Route: 058
     Dates: start: 20130516
  2. METICORTEN [Concomitant]
     Indication: PRODUCT USED FOR UNKNOWN INDICATION
     Route: 048
     Dates: start: 198808
  3. CAPTOPRIL [Concomitant]
     Indication: BLOOD PRESSURE ABNORMAL
     Dosage: 2 TABLETS DAILY
     Route: 048
     Dates: start: 201208
  4. HYDROCHLOROTHIAZIDE [Concomitant]
     Indication: BLOOD PRESSURE ABNORMAL
     Route: 048
     Dates: start: 201208
  5. DICLOFENAC [Concomitant]
     Indication: BLOOD PRESSURE ABNORMAL
     Route: 048
     Dates: start: 2012
  6. IBUPROFEN [Concomitant]
     Indication: BLOOD PRESSURE ABNORMAL
     Route: 048
     Dates: start: 201208, end: 20130701
  7. AAS [Concomitant]
     Indication: BLOOD PRESSURE ABNORMAL
     Route: 048
     Dates: start: 201208
  8. AMYTRIL [Concomitant]
     Indication: INSOMNIA
     Dosage: 2 HRS BEFORE SLEEP
     Route: 048
  9. PARACETAMOL [Concomitant]
     Indication: MIGRAINE
     Route: 048
     Dates: start: 201208

REACTIONS (5)
  - Abasia [Recovered/Resolved]
  - Bone pain [Recovered/Resolved]
  - Infarction [Recovered/Resolved]
  - Dizziness [Recovered/Resolved]
  - Injection site pruritus [Recovered/Resolved]
